FAERS Safety Report 17983148 (Version 5)
Quarter: 2022Q2

REPORT INFORMATION
  Report Type: Spontaneous
  Country: US (occurrence: US)
  Receive Date: 20200706
  Receipt Date: 20220426
  Transmission Date: 20220721
  Serious: No
  Sender: FDA-Public Use
  Company Number: US-PFIZER INC-2020256853

PATIENT
  Age: 43 Year
  Sex: Male
  Weight: 68.04 kg

DRUGS (2)
  1. PREGABALIN [Suspect]
     Active Substance: PREGABALIN
     Indication: Nerve injury
     Dosage: UNK
     Dates: start: 2020
  2. PREGABALIN [Suspect]
     Active Substance: PREGABALIN
     Indication: Multiple sclerosis

REACTIONS (2)
  - Drug ineffective for unapproved indication [Unknown]
  - Off label use [Unknown]

NARRATIVE: CASE EVENT DATE: 20200101
